FAERS Safety Report 23397814 (Version 1)
Quarter: 2024Q1

REPORT INFORMATION
  Report Type: Spontaneous
  Country: US (occurrence: None)
  Receive Date: 20240111
  Receipt Date: 20240111
  Transmission Date: 20240410
  Serious: Yes (Other)
  Sender: FDA-Public Use
  Company Number: None

PATIENT
  Age: 43 Year
  Sex: Female
  Weight: 67.5 kg

DRUGS (1)
  1. .DELTA.8-TETRAHYDROCANNABINOL\CANNABIDIOL\HERBALS [Suspect]
     Active Substance: .DELTA.8-TETRAHYDROCANNABINOL\CANNABIDIOL\HERBALS
     Indication: Feeling of relaxation
     Dosage: OTHER QUANTITY : 1 150 MG GUMMY;?
     Route: 048
     Dates: start: 20240110, end: 20240110

REACTIONS (9)
  - Tremor [None]
  - Muscle spasms [None]
  - Feeling cold [None]
  - Palpitations [None]
  - Panic attack [None]
  - Vomiting [None]
  - Dizziness [None]
  - Headache [None]
  - Choking sensation [None]

NARRATIVE: CASE EVENT DATE: 20240110
